FAERS Safety Report 8398147-0 (Version None)
Quarter: 2012Q2

REPORT INFORMATION
  Report Type: 
  Country: None (occurrence: None)
  Receive Date: 20120531
  Receipt Date: 20120525
  Transmission Date: 20120825
  Serious: Yes (Other)
  Sender: FDA-Public Use
  Company Number: PHHY2012AU045195

PATIENT
  Age: 82 Year
  Sex: Female

DRUGS (2)
  1. VENLAFAXINE [Suspect]
     Dosage: LOW DOSE NOT STATED
  2. VENLAFAXINE [Suspect]
     Dosage: 37.5 MG, QD

REACTIONS (4)
  - STRESS CARDIOMYOPATHY [None]
  - ELECTROCARDIOGRAM QT PROLONGED [None]
  - SYNCOPE [None]
  - CHEST PAIN [None]
